FAERS Safety Report 6060818-9 (Version None)
Quarter: 2009Q1

REPORT INFORMATION
  Report Type: 
  Country: None (occurrence: None)
  Receive Date: 20090202
  Receipt Date: 20090127
  Transmission Date: 20090719
  Serious: Yes (Death, Hospitalization)
  Sender: FDA-Public Use
  Company Number: PHBS2008US06235

PATIENT
  Age: 58 Year
  Sex: Female

DRUGS (5)
  1. IMATINIB MESYLATE [Suspect]
     Indication: CHRONIC MYELOID LEUKAEMIA
     Dosage: 400 MG/DAY
     Dates: end: 20060701
  2. DASATINIB [Suspect]
     Indication: CHRONIC MYELOID LEUKAEMIA
     Dosage: 70 MG, BID
     Dates: start: 20060701, end: 20061201
  3. DASATINIB [Suspect]
     Dosage: 70 MG/DAY
  4. DASATINIB [Suspect]
     Dosage: 70 MG EVERY OTHER DAY
  5. DASATINIB [Suspect]
     Dosage: 70 MG, BID
     Dates: start: 20060901, end: 20061205

REACTIONS (18)
  - ANAEMIA [None]
  - ASTHENIA [None]
  - BLAST CRISIS IN MYELOGENOUS LEUKAEMIA [None]
  - BLOOD CREATININE INCREASED [None]
  - BLOOD UREA INCREASED [None]
  - EJECTION FRACTION ABNORMAL [None]
  - ENTEROCOCCAL BACTERAEMIA [None]
  - HAEMORRHAGE [None]
  - HYPOXIA [None]
  - MENTAL STATUS CHANGES [None]
  - NEUTROPENIA [None]
  - OEDEMA PERIPHERAL [None]
  - PANCYTOPENIA [None]
  - PLEURAL EFFUSION [None]
  - PYREXIA [None]
  - RENAL FAILURE ACUTE [None]
  - RESPIRATORY DISTRESS [None]
  - THROMBOCYTOPENIA [None]
